FAERS Safety Report 12350603 (Version 1)
Quarter: 2016Q2

REPORT INFORMATION
  Report Type: Spontaneous
  Country: GR (occurrence: GR)
  Receive Date: 20160510
  Receipt Date: 20160510
  Transmission Date: 20160815
  Serious: Yes (Life-Threatening, Other)
  Sender: FDA-Public Use
  Company Number: GR-009507513-1605GRC002246

PATIENT
  Age: 26 Year
  Sex: Female

DRUGS (8)
  1. MEROPENEM. [Concomitant]
     Active Substance: MEROPENEM
  2. AMIKACIN [Concomitant]
     Active Substance: AMIKACIN
  3. POSACONAZOLE [Suspect]
     Active Substance: POSACONAZOLE
     Indication: SEPSIS
     Route: 048
  4. COLISTIN [Concomitant]
     Active Substance: COLISTIN
  5. VORICONAZOLE. [Concomitant]
     Active Substance: VORICONAZOLE
     Dosage: UNK
  6. DAPTOMYCIN. [Concomitant]
     Active Substance: DAPTOMYCIN
  7. CEFAMANDOLE [Concomitant]
     Active Substance: CEFAMANDOLE
  8. LINEZOLID. [Concomitant]
     Active Substance: LINEZOLID

REACTIONS (5)
  - Bradycardia [Unknown]
  - Electrocardiogram QT prolonged [Unknown]
  - Ventricular fibrillation [Unknown]
  - Cardiac arrest [Unknown]
  - Ventricular tachycardia [Unknown]
